FAERS Safety Report 4537553-9 (Version None)
Quarter: 2004Q4

REPORT INFORMATION
  Report Type: 
  Country: None (occurrence: None)
  Receive Date: 20041216
  Receipt Date: 20040225
  Transmission Date: 20050328
  Serious: Yes (Hospitalization)
  Sender: FDA-Public Use
  Company Number: HQWYE366926FEB04

PATIENT
  Age: 16 Year
  Sex: Female
  Weight: 56.75 kg

DRUGS (4)
  1. EFFEXOR XR [Suspect]
     Indication: DEPRESSION
     Dosage: ORAL
     Route: 048
     Dates: start: 20030804, end: 20030804
  2. EFFEXOR XR [Suspect]
     Indication: MIGRAINE
     Dosage: ORAL
     Route: 048
     Dates: start: 20030804, end: 20030804
  3. TYLENOL [Suspect]
     Dosage: 8 TABLET 1X PER 1 DAY, ORAL
     Route: 048
     Dates: start: 20030804, end: 20030804
  4. KETOPROFEN [Concomitant]

REACTIONS (8)
  - DRUG INEFFECTIVE [None]
  - EMOTIONAL DISORDER [None]
  - EUPHORIC MOOD [None]
  - INTENTIONAL OVERDOSE [None]
  - SUICIDAL IDEATION [None]
  - SUICIDE ATTEMPT [None]
  - VOMITING [None]
  - WEIGHT DECREASED [None]
